FAERS Safety Report 5345096-8 (Version None)
Quarter: 2007Q2

REPORT INFORMATION
  Report Type: 
  Country: None (occurrence: None)
  Receive Date: 20070420
  Receipt Date: 20060906
  Transmission Date: 20071010
  Serious: Yes (Other)
  Sender: FDA-Public Use
  Company Number: 147394USA

PATIENT
  Age: 55 Year
  Sex: Female

DRUGS (16)
  1. PAMIDRONATE DISODIUM [Suspect]
     Indication: BREAST CANCER
     Dates: start: 20000501, end: 20060401
  2. ZOMETA [Suspect]
     Indication: BREAST CANCER
     Dates: start: 20020101, end: 20051001
  3. NOVOLIN 70/30 [Concomitant]
  4. HYDROXYZINE HYDROCHLORIDE [Concomitant]
  5. TEMAZEPAM [Concomitant]
  6. ATENOLOL [Concomitant]
  7. PROTONIX [Concomitant]
  8. HYDROMORPHONE HYDROCHLORIDE [Concomitant]
  9. OXYCODONE HCL [Concomitant]
  10. POTASSIUM CHLORIDE [Concomitant]
  11. BUMETANIDE [Concomitant]
  12. GABAPENTIN [Concomitant]
  13. ONDANSETRON HCL [Concomitant]
  14. SENNA ALEXANDRINA [Concomitant]
  15. LIDODERM [Concomitant]
  16. HERCEPTIN [Concomitant]

REACTIONS (1)
  - OSTEONECROSIS [None]
